FAERS Safety Report 6358259-X (Version None)
Quarter: 2009Q3

REPORT INFORMATION
  Report Type: 
  Country: None (occurrence: None)
  Receive Date: 20090911
  Receipt Date: 20090827
  Transmission Date: 20100115
  Serious: Yes (Hospitalization)
  Sender: FDA-Public Use
  Company Number: 2009S1015334

PATIENT
  Age: 14 Year
  Sex: Female

DRUGS (2)
  1. FLUVOXAMINE MALEATE [Suspect]
     Dosage: ORAL
     Route: 048
  2. PROMETHAZINE [Suspect]
     Dosage: ORAL
     Route: 048

REACTIONS (4)
  - DELIRIUM [None]
  - DRUG INTERACTION [None]
  - DRUG TOXICITY [None]
  - OVERDOSE [None]
